FAERS Safety Report 7948370-1 (Version None)
Quarter: 2011Q4

REPORT INFORMATION
  Report Type: 
  Country: None (occurrence: None)
  Receive Date: 20111130
  Receipt Date: 20111122
  Transmission Date: 20120403
  Serious: Yes (Hospitalization)
  Sender: FDA-Public Use
  Company Number: FR-UCBSA-046282

PATIENT
  Sex: Male

DRUGS (1)
  1. VIMPAT [Suspect]
     Dosage: SINGLE INJECTION
     Route: 042
     Dates: start: 20111101, end: 20111101

REACTIONS (5)
  - VERTIGO [None]
  - WOUND [None]
  - FALL [None]
  - OVERDOSE [None]
  - NAUSEA [None]
